FAERS Safety Report 7256418-5 (Version None)
Quarter: 2011Q1

REPORT INFORMATION
  Report Type: 
  Country: None (occurrence: None)
  Receive Date: 20110129
  Receipt Date: 20100721
  Transmission Date: 20110831
  Serious: No
  Sender: FDA-Public Use
  Company Number: US-ABBOTT-10P-163-0659080-00

PATIENT
  Age: 49 Year
  Sex: Female

DRUGS (8)
  1. SALAGEN [Concomitant]
     Indication: DRY MOUTH
  2. TRAMADOL HCL [Concomitant]
     Indication: RHEUMATOID ARTHRITIS
  3. RELASIN [Concomitant]
     Indication: RHEUMATOID ARTHRITIS
     Dosage: DAILY
  4. PLAQUENIL [Concomitant]
     Indication: RHEUMATOID ARTHRITIS
     Dosage: DAILY
  5. PRIMPRO [Concomitant]
     Indication: HORMONE REPLACEMENT THERAPY
     Dosage: 0.625/25MG DAILY
  6. ARAVA [Concomitant]
     Indication: RHEUMATOID ARTHRITIS
     Dosage: DAILY
  7. HUMIRA [Suspect]
     Indication: RHEUMATOID ARTHRITIS
     Dates: start: 20100501
  8. NEXIUM [Concomitant]
     Indication: GASTROOESOPHAGEAL REFLUX DISEASE

REACTIONS (3)
  - NASOPHARYNGITIS [None]
  - INJECTION SITE ERYTHEMA [None]
  - INJECTION SITE HAEMATOMA [None]
